FAERS Safety Report 15036478 (Version 1)
Quarter: 2018Q2

REPORT INFORMATION
  Report Type: Spontaneous
  Country: US (occurrence: US)
  Receive Date: 20180530
  Receipt Date: 20180530
  Transmission Date: 20180711
  Serious: Yes (Hospitalization)
  Sender: FDA-Public Use
  Company Number: None

PATIENT
  Age: 72 Year
  Sex: Female

DRUGS (2)
  1. FEMARA [Concomitant]
     Active Substance: LETROZOLE
  2. IBRANCE [Suspect]
     Active Substance: PALBOCICLIB
     Indication: BREAST CANCER
     Dosage: ?          OTHER FREQUENCY:QD1-21 OF 28 DAYS ;?
     Route: 048
     Dates: start: 20180424

REACTIONS (3)
  - Drug dose omission [None]
  - Nausea [None]
  - Hernia repair [None]

NARRATIVE: CASE EVENT DATE: 20180430
